FAERS Safety Report 6520427-1 (Version None)
Quarter: 2009Q4

REPORT INFORMATION
  Report Type: 
  Country: None (occurrence: None)
  Receive Date: 20091229
  Receipt Date: 20091216
  Transmission Date: 20100525
  Serious: Yes (Hospitalization, Other)
  Sender: FDA-Public Use
  Company Number: PHHY2009BR54506

PATIENT
  Age: 73 Year
  Sex: Female
  Weight: 64.2 kg

DRUGS (9)
  1. FORASEQ [Suspect]
     Indication: EMPHYSEMA
     Dosage: 1 DF, BID
  2. FORASEQ [Suspect]
     Indication: BRONCHITIS
  3. TEGRETOL-XR [Suspect]
     Indication: CONVULSION
     Dosage: UNK
     Route: 048
     Dates: start: 20030101
  4. RISPERIDONE [Concomitant]
     Indication: ANXIETY
     Dosage: 1 DF, BID
  5. HIDRION [Concomitant]
     Indication: SWELLING
     Dosage: UNK
  6. FORMOTEROL FUMARATE [Concomitant]
     Indication: LUNG DISORDER
  7. METFORMIN [Concomitant]
     Indication: DIABETES MELLITUS
     Dosage: UNK
  8. FLUIMUCIL [Concomitant]
     Indication: LUNG DISORDER
     Dosage: 1 DF, QHS
     Dates: start: 20091204
  9. LEXAPRO [Concomitant]
     Dosage: 1 DF, QD
     Dates: start: 20090801

REACTIONS (7)
  - ABDOMINAL OPERATION [None]
  - BRONCHITIS [None]
  - CEREBRAL AMYLOID ANGIOPATHY [None]
  - DYSPNOEA [None]
  - FATIGUE [None]
  - INTRA-ABDOMINAL HAEMORRHAGE [None]
  - LUNG DISORDER [None]
